FAERS Safety Report 4344008-3 (Version None)
Quarter: 2004Q2

REPORT INFORMATION
  Report Type: 
  Country: None (occurrence: None)
  Receive Date: 20040422
  Receipt Date: 20040408
  Transmission Date: 20050107
  Serious: Yes (Disabling)
  Sender: FDA-Public Use
  Company Number: US-MERCK-0404USA01046

PATIENT
  Age: 65 Year
  Sex: Male

DRUGS (4)
  1. SYNTHROID [Concomitant]
     Route: 065
  2. COZAAR [Concomitant]
     Route: 048
  3. METOPROLOL [Concomitant]
     Route: 065
  4. ZOCOR [Suspect]
     Route: 048
     Dates: start: 20030101

REACTIONS (1)
  - PERIPHERAL PARALYSIS [None]
